FAERS Safety Report 6668819-4 (Version None)
Quarter: 2010Q2

REPORT INFORMATION
  Report Type: 
  Country: None (occurrence: None)
  Receive Date: 20100402
  Receipt Date: 20100326
  Transmission Date: 20101027
  Serious: Yes (Life-Threatening)
  Sender: FDA-Public Use
  Company Number: 2010TJ0078

PATIENT
  Age: 44 Year
  Sex: Female

DRUGS (1)
  1. TWINJECT 0.3 [Suspect]
     Indication: ANAPHYLACTIC REACTION
     Dosage: 0.3 MG, AS NEEDED

REACTIONS (3)
  - DEVICE FAILURE [None]
  - GENERAL PHYSICAL HEALTH DETERIORATION [None]
  - PRODUCT QUALITY ISSUE [None]
